FAERS Safety Report 8495153-2 (Version None)
Quarter: 2012Q3

REPORT INFORMATION
  Report Type: 
  Country: None (occurrence: None)
  Receive Date: 20120702
  Receipt Date: 20120702
  Transmission Date: 20120928
  Serious: Yes (Other)
  Sender: FDA-Public Use
  Company Number: None

PATIENT
  Sex: Female
  Weight: 100.8 kg

DRUGS (3)
  1. FERAHEME [Suspect]
     Indication: IRON DEFICIENCY ANAEMIA
     Dates: start: 20120409
  2. MULTI-VITAMIN [Concomitant]
  3. VITAMIN B-12 [Concomitant]

REACTIONS (6)
  - HYPERHIDROSIS [None]
  - URTICARIA [None]
  - DYSPNOEA [None]
  - INFUSION SITE ERYTHEMA [None]
  - FLUSHING [None]
  - LIP OEDEMA [None]
